FAERS Safety Report 7676594-X (Version None)
Quarter: 2011Q3

REPORT INFORMATION
  Report Type: 
  Country: None (occurrence: None)
  Receive Date: 20110809
  Receipt Date: 20110809
  Transmission Date: 20111222
  Serious: No
  Sender: FDA-Public Use
  Company Number: None

PATIENT
  Sex: Male

DRUGS (2)
  1. VIRAMUNE [Suspect]
  2. TRUVADA [Suspect]
     Indication: HIV INFECTION
     Dosage: 200/300MG DAILY ORAL
     Route: 048
     Dates: start: 20091224, end: 20110608

REACTIONS (1)
  - LOSS OF LIBIDO [None]
